FAERS Safety Report 9217332 (Version 1)
Quarter: 2013Q1

REPORT INFORMATION
  Report Type: Spontaneous
  Country: US (occurrence: None)
  Receive Date: 20120827
  Receipt Date: 20120827
  Transmission Date: 20140127
  Serious: No
  Sender: FDA-Public Use
  Company Number: 353812

PATIENT
  Age: 50 Year
  Sex: Female
  Weight: 127 kg

DRUGS (2)
  1. VICTOZA [Suspect]
     Route: 058
     Dates: start: 20120608, end: 20120610
  2. GLYBURIDE (GLIBENCLAMIDE) [Suspect]
     Route: 048
     Dates: end: 20120610

REACTIONS (5)
  - Urine output decreased [None]
  - Insomnia [None]
  - Dizziness [None]
  - Blood glucose decreased [None]
  - Blood glucose increased [None]
